FAERS Safety Report 16837549 (Version 4)
Quarter: 2020Q4

REPORT INFORMATION
  Report Type: Report from Study
  Country: ES (occurrence: ES)
  Receive Date: 20190923
  Receipt Date: 20201009
  Transmission Date: 20210113
  Serious: Yes (Hospitalization)
  Sender: FDA-Public Use
  Company Number: ES-ROCHE-2322384

PATIENT
  Age: 33 Year
  Sex: Female

DRUGS (5)
  1. ENTRECTINIB [Suspect]
     Active Substance: ENTRECTINIB
     Indication: NEOPLASM
     Dosage: DATE OF LAST DOSE PRIOR TO HYPERSENSITIVITY: 16/MAY/2019?DATE OF LAST DOSE PRIOR TO THE EVENT OF CRE
     Route: 048
     Dates: start: 20190507, end: 20190519
  2. PREDNISONE. [Concomitant]
     Active Substance: PREDNISONE
  3. ENTRECTINIB [Suspect]
     Active Substance: ENTRECTINIB
     Route: 048
     Dates: start: 20190620
  4. ENTRECTINIB [Suspect]
     Active Substance: ENTRECTINIB
     Route: 048
     Dates: start: 20190627
  5. ENTRECTINIB [Suspect]
     Active Substance: ENTRECTINIB
     Route: 048
     Dates: start: 20190611

REACTIONS (2)
  - Hypersensitivity [Recovered/Resolved]
  - Blood creatinine increased [Recovered/Resolved]

NARRATIVE: CASE EVENT DATE: 20190516
